FAERS Safety Report 14303804 (Version 1)
Quarter: 2017Q4

REPORT INFORMATION
  Report Type: Spontaneous
  Country: US (occurrence: US)
  Receive Date: 20171219
  Receipt Date: 20171219
  Transmission Date: 20180321
  Serious: Yes (Other)
  Sender: FDA-Public Use
  Company Number: US-OTSUKA-DJ20090674

PATIENT
  Sex: Female
  Weight: 80.27 kg

DRUGS (1)
  1. ABILIFY [Suspect]
     Active Substance: ARIPIPRAZOLE
     Indication: PRODUCT USED FOR UNKNOWN INDICATION
     Dosage: 10 MG, UNK
     Route: 065
     Dates: start: 200802, end: 200804

REACTIONS (11)
  - Hyperhidrosis [Unknown]
  - Muscle spasms [Unknown]
  - Irritability [Unknown]
  - Pancreatic failure [Unknown]
  - Disturbance in attention [Unknown]
  - Aggression [Unknown]
  - Pain [Unknown]
  - Restlessness [Unknown]
  - Tremor [Unknown]
  - Urinary retention [Unknown]
  - Anger [Unknown]

NARRATIVE: CASE EVENT DATE: 2008
